FAERS Safety Report 6132234-2 (Version None)
Quarter: 2009Q1

REPORT INFORMATION
  Report Type: 
  Country: None (occurrence: None)
  Receive Date: 20090325
  Receipt Date: 20090314
  Transmission Date: 20090719
  Serious: Yes (Hospitalization)
  Sender: FDA-Public Use
  Company Number: US-PFIZER INC-2005156183

PATIENT
  Sex: Female
  Weight: 99.79 kg

DRUGS (17)
  1. BLINDED *PLACEBO [Suspect]
     Indication: HIV INFECTION
     Dosage: 150 MG, 2X/DAY
     Route: 048
     Dates: start: 20050824, end: 20051005
  2. BLINDED MARAVIROC [Suspect]
     Indication: HIV INFECTION
     Dosage: 150 MG, 2X/DAY
     Route: 048
     Dates: start: 20050824, end: 20051005
  3. TENOFOVIR [Concomitant]
     Route: 048
     Dates: start: 20050824, end: 20051005
  4. ATAZANAVIR SULFATE [Concomitant]
     Route: 048
     Dates: start: 20050824, end: 20051005
  5. RITONAVIR [Concomitant]
     Route: 048
     Dates: start: 20050824, end: 20051005
  6. FOSAMPRENAVIR [Concomitant]
     Route: 048
     Dates: start: 20050824, end: 20051005
  7. AMLODIPINE [Concomitant]
     Route: 048
     Dates: start: 20050811
  8. BENAZEPRIL HYDROCHLORIDE [Concomitant]
     Route: 048
     Dates: start: 20050811
  9. PAROXETINE HCL [Concomitant]
     Route: 048
     Dates: start: 20050811
  10. RIBOFLAVIN TAB [Concomitant]
     Route: 048
     Dates: start: 20050811
  11. COENZYME Q10 [Concomitant]
     Route: 048
     Dates: start: 20050811
  12. MULTI-VITAMINS [Concomitant]
     Route: 048
     Dates: start: 20050811
  13. ASCORBIC ACID [Concomitant]
     Route: 048
     Dates: start: 20050811
  14. VITAMIN B COMPLEX CAP [Concomitant]
     Route: 048
     Dates: start: 20050811
  15. LOVAZA [Concomitant]
     Route: 048
     Dates: start: 20050819
  16. VICODIN [Concomitant]
     Route: 048
  17. DIPHENHYDRAMINE [Concomitant]
     Route: 048
     Dates: start: 20050824

REACTIONS (2)
  - ANXIETY [None]
  - CHEST PAIN [None]
